FAERS Safety Report 21302954 (Version 1)
Quarter: 2022Q3

REPORT INFORMATION
  Report Type: Spontaneous
  Country: CA (occurrence: CA)
  Receive Date: 20220907
  Receipt Date: 20220907
  Transmission Date: 20221026
  Serious: Yes (Hospitalization)
  Sender: FDA-Public Use
  Company Number: CA-SAMSUNG BIOEPIS-SB-2022-22054

PATIENT
  Age: 11 Year
  Sex: Female

DRUGS (12)
  1. ETANERCEPT [Suspect]
     Active Substance: ETANERCEPT
     Indication: Mucocutaneous rash
     Dosage: FIRST DOSE ON DAY 2
     Route: 058
  2. ETANERCEPT [Suspect]
     Active Substance: ETANERCEPT
     Indication: Mucosal inflammation
     Dosage: SECOND DOSE ON DAY 5
     Route: 058
  3. HUMAN IMMUNOGLOBULIN G [Suspect]
     Active Substance: HUMAN IMMUNOGLOBULIN G
     Indication: Mucocutaneous rash
     Dosage: ONE DOSE ON DAY 3
     Route: 042
  4. HUMAN IMMUNOGLOBULIN G [Suspect]
     Active Substance: HUMAN IMMUNOGLOBULIN G
     Indication: Mucosal inflammation
  5. AKABUTUS MOUTHWASH [Concomitant]
     Indication: Stomatitis
     Dosage: GARGLE 15 TO 30 ML IN MOUTH/THROAT FOR 1 MIN, AND SPIT OUT EXCESS. REPEAT EVERY 4 TO 6 H AS NEEDED?F
     Route: 048
  6. SUCRALFATE [Concomitant]
     Active Substance: SUCRALFATE
     Indication: Stomatitis
     Dosage: UNKNOWN, SUSPENSION
     Route: 065
  7. TRANEXAMIC ACID [Concomitant]
     Active Substance: TRANEXAMIC ACID
     Indication: Stomatitis
     Dosage: UNKNOWN
     Route: 065
  8. CLOBETASOL PROPIONATE [Concomitant]
     Active Substance: CLOBETASOL PROPIONATE
     Indication: Mucocutaneous rash
     Dosage: UNKNOWN
     Route: 065
  9. LIDOCAINE [Concomitant]
     Active Substance: LIDOCAINE
     Indication: Mucocutaneous rash
     Dosage: UNKNOWN
     Route: 065
  10. PETROLATUM [Concomitant]
     Active Substance: PETROLATUM
     Indication: Mucocutaneous rash
     Dosage: UNKNOWN
     Route: 065
  11. DEXAMETHASONE [Concomitant]
     Active Substance: DEXAMETHASONE
     Indication: Mucocutaneous rash
     Dosage: UNKNOWN, OPHTHALMIC DROPS
     Route: 065
  12. DEXAMETHASONE [Concomitant]
     Active Substance: DEXAMETHASONE
     Indication: Mucosal inflammation

REACTIONS (3)
  - Mucocutaneous rash [Recovering/Resolving]
  - Drug interaction [Unknown]
  - Off label use [Unknown]
